FAERS Safety Report 24930145 (Version 5)
Quarter: 2025Q1

REPORT INFORMATION
  Report Type: Report from Study
  Country: BR (occurrence: BR)
  Receive Date: 20250205
  Receipt Date: 20250317
  Transmission Date: 20250408
  Serious: Yes (Hospitalization, Other)
  Sender: GILEAD
  Company Number: BR-GILEAD-2025-0702725

PATIENT
  Age: 36 Year
  Sex: Female
  Weight: 135 kg

DRUGS (2)
  1. AXICABTAGENE CILOLEUCEL [Suspect]
     Active Substance: AXICABTAGENE CILOLEUCEL
     Indication: Diffuse large B-cell lymphoma
     Route: 042
     Dates: start: 20250131, end: 20250131
  2. DEXAMETHASONE [Concomitant]
     Active Substance: DEXAMETHASONE
     Dates: start: 20250131, end: 20250202

REACTIONS (6)
  - Cytokine release syndrome [Recovered/Resolved]
  - Dysgraphia [Unknown]
  - Neutropenia [Unknown]
  - Pyrexia [Unknown]
  - Peripheral swelling [Not Recovered/Not Resolved]
  - Thrombosis [Unknown]

NARRATIVE: CASE EVENT DATE: 20250202
